FAERS Safety Report 20033681 (Version 2)
Quarter: 2022Q1

REPORT INFORMATION
  Report Type: Spontaneous
  Country: JP (occurrence: JP)
  Receive Date: 20211104
  Receipt Date: 20220105
  Transmission Date: 20220423
  Serious: Yes (Other)
  Sender: FDA-Public Use
  Company Number: JP-SYMBIO-202100399

PATIENT
  Age: 59 Year
  Sex: Female

DRUGS (2)
  1. BENDAMUSTINE HYDROCHLORIDE [Suspect]
     Active Substance: BENDAMUSTINE HYDROCHLORIDE
     Indication: Lymphoma
     Dosage: (DAY 1 AND 2)
     Route: 041
  2. RITUXAN [Concomitant]
     Active Substance: RITUXIMAB
     Indication: Lymphoma
     Route: 041

REACTIONS (13)
  - Neuropathy peripheral [Unknown]
  - Stomatitis [Unknown]
  - Proctalgia [Unknown]
  - Constipation [Unknown]
  - Diarrhoea [Unknown]
  - Epistaxis [Unknown]
  - Drug eruption [Unknown]
  - Vascular pain [Unknown]
  - Dysgeusia [Unknown]
  - Nausea [Unknown]
  - Anaemia [Unknown]
  - Off label use [Unknown]
  - Product use in unapproved indication [Unknown]
